FAERS Safety Report 9188451 (Version 1)
Quarter: 2012Q4

REPORT INFORMATION
  Report Type: 
  Country: EG (occurrence: EG)
  Receive Date: 20121205
  Receipt Date: 20121205
  Transmission Date: 20130627
  Serious: Yes (Other)
  Sender: FDA-Public Use
  Company Number: PHHY2012EG111486

PATIENT
  Sex: Male

DRUGS (1)
  1. CURAM LB [Suspect]

REACTIONS (3)
  - Asthma [Unknown]
  - Sinusitis [Unknown]
  - Body temperature increased [Unknown]
